FAERS Safety Report 23187706 (Version 2)
Quarter: 2023Q4

REPORT INFORMATION
  Report Type: Spontaneous
  Country: US (occurrence: US)
  Receive Date: 20231115
  Receipt Date: 20231213
  Transmission Date: 20240110
  Serious: No
  Sender: FDA-Public Use
  Company Number: US-NOVOPROD-1022207

PATIENT
  Age: 5 Year
  Sex: Female

DRUGS (6)
  1. LEVEMIR [Suspect]
     Active Substance: INSULIN DETEMIR
     Indication: Type 1 diabetes mellitus
     Dosage: 5 UNITS (AM) AND 4-4.5UNITS (PM)
     Dates: start: 202205
  2. LEVEMIR [Suspect]
     Active Substance: INSULIN DETEMIR
     Dosage: 4- 10 UNITS BID
     Dates: start: 202205
  3. LEVEMIR [Suspect]
     Active Substance: INSULIN DETEMIR
     Dosage: 5 UNITS AM AND 4-4.5UNITS PM
     Dates: start: 202205
  4. NOVOLOG [Suspect]
     Active Substance: INSULIN ASPART
     Dosage: 0.5 TO 1.5UNITS BID
     Route: 058
  5. NOVOLOG [Suspect]
     Active Substance: INSULIN ASPART
     Indication: Type 1 diabetes mellitus
     Dosage: 0.5 TO 1.5UNITS BID
     Route: 058
     Dates: start: 202205
  6. NOVOLOG [Suspect]
     Active Substance: INSULIN ASPART
     Dosage: 0.5 TO 3.5UNITS BID
     Route: 058
     Dates: start: 202205

REACTIONS (4)
  - Nasopharyngitis [Recovered/Resolved]
  - Cough [Recovered/Resolved]
  - Blood glucose increased [Recovered/Resolved]
  - Therapeutic product effect decreased [Not Recovered/Not Resolved]

NARRATIVE: CASE EVENT DATE: 20220501
